FAERS Safety Report 18642439 (Version 1)
Quarter: 2020Q4

REPORT INFORMATION
  Report Type: Spontaneous
  Country: US (occurrence: US)
  Receive Date: 20201218
  Receipt Date: 20201218
  Transmission Date: 20210114
  Serious: No
  Sender: FDA-Public Use
  Company Number: None

PATIENT
  Sex: Female

DRUGS (1)
  1. KISQALI FEMARA CO-PACK [Suspect]
     Active Substance: LETROZOLE\RIBOCICLIB
     Indication: METASTASES TO BONE
     Dosage: ?          OTHER DOSE:600/2.5;OTHER FREQUENCY:3 TABLETS DAILY;?
     Route: 048
     Dates: start: 20201124

REACTIONS (4)
  - Intentional dose omission [None]
  - Haemoglobin decreased [None]
  - Full blood count decreased [None]
  - White blood cell count decreased [None]
